FAERS Safety Report 14197793 (Version 1)
Quarter: 2017Q4

REPORT INFORMATION
  Report Type: Spontaneous
  Country: US (occurrence: US)
  Receive Date: 20171117
  Receipt Date: 20171117
  Transmission Date: 20180321
  Serious: No
  Sender: FDA-Public Use
  Company Number: US-B.I. PHARMACEUTICALS,INC./RIDGEFIELD-2017-BI-060956

PATIENT
  Age: 75 Year
  Sex: Male

DRUGS (6)
  1. TAMSULOSIN [Concomitant]
     Active Substance: TAMSULOSIN
     Indication: PROSTATOMEGALY
     Route: 048
     Dates: start: 201709
  2. ALLERGY RELIEF OTC [Concomitant]
     Indication: SEASONAL ALLERGY
     Route: 065
     Dates: start: 201709
  3. SPIRIVA [Suspect]
     Active Substance: TIOTROPIUM BROMIDE MONOHYDRATE
     Indication: CHRONIC OBSTRUCTIVE PULMONARY DISEASE
     Route: 055
     Dates: start: 20171106
  4. FUROSEMIDE. [Concomitant]
     Active Substance: FUROSEMIDE
     Indication: FLUID RETENTION
     Dosage: ONCE DAILY;  FORM STRENGTH: 20MG; FORMULATION: TABLET
     Route: 048
     Dates: start: 201709
  5. LISINOPRIL. [Concomitant]
     Active Substance: LISINOPRIL
     Indication: HYPERTENSION
     Dosage: ONCE DAILY;  FORM STRENGTH: 40MG; FORMULATION: TABLET
     Route: 048
     Dates: start: 2016
  6. ASPIRIN. [Concomitant]
     Active Substance: ASPIRIN
     Indication: CARDIOVASCULAR EVENT PROPHYLAXIS
     Dosage: ONCE DAILY;  FORM STRENGTH: 81MG; FORMULATION: TABLET
     Route: 048

REACTIONS (1)
  - Drug ineffective [Not Recovered/Not Resolved]

NARRATIVE: CASE EVENT DATE: 20171106
